FAERS Safety Report 10398939 (Version 1)
Quarter: 2014Q3

REPORT INFORMATION
  Report Type: Spontaneous
  Country: US (occurrence: None)
  Receive Date: 20140818
  Receipt Date: 20140818
  Transmission Date: 20150326
  Serious: Yes (Disabling, Other)
  Sender: FDA-Public Use
  Company Number: None

PATIENT
  Age: 87 Year
  Sex: Male
  Weight: 70.31 kg

DRUGS (1)
  1. SULFASALAZINE. [Suspect]
     Active Substance: SULFASALAZINE
     Indication: OSTEOARTHRITIS
     Dosage: UP 8 PILLS/DAY FOUR TIMES DAILY TAKEN BY MOUTH
     Route: 048

REACTIONS (3)
  - Chronic obstructive pulmonary disease [None]
  - Contraindication to medical treatment [None]
  - Neuropathy peripheral [None]

NARRATIVE: CASE EVENT DATE: 20140816
